FAERS Safety Report 5390812-2 (Version None)
Quarter: 2007Q3

REPORT INFORMATION
  Report Type: 
  Country: None (occurrence: None)
  Receive Date: 20070716
  Receipt Date: 20070706
  Transmission Date: 20080115
  Serious: Yes (Hospitalization)
  Sender: FDA-Public Use
  Company Number: 2006SP004167

PATIENT
  Age: 73 Year
  Sex: Male
  Weight: 85 kg

DRUGS (11)
  1. INTRON A [Suspect]
     Indication: HEPATITIS C
     Dosage: 1.5 MCG/KG;
     Dates: start: 20021203
  2. RIBAVIRIN [Suspect]
     Indication: HEPATITIS C
     Dosage: 1200 MG; 0 MG; 600 MG; 800 MG
     Dates: start: 20030102
  3. RIBAVIRIN [Suspect]
     Indication: HEPATITIS C
     Dosage: 1200 MG; 0 MG; 600 MG; 800 MG
     Dates: start: 20030204
  4. RIBAVIRIN [Suspect]
     Indication: HEPATITIS C
     Dosage: 1200 MG; 0 MG; 600 MG; 800 MG
     Dates: start: 20030225
  5. RIBAVIRIN [Suspect]
     Indication: HEPATITIS C
     Dosage: 1200 MG; 0 MG; 600 MG; 800 MG
     Dates: start: 20030324
  6. PEG-INTRON [Suspect]
     Indication: HEPATITIS C
     Dosage: 1.5 MCG/KG, 1.5 MCG/KG, 1.5 MCG/KG
     Dates: start: 20030102
  7. PEG-INTRON [Suspect]
     Indication: HEPATITIS C
     Dosage: 1.5 MCG/KG, 1.5 MCG/KG, 1.5 MCG/KG
     Dates: start: 20030204
  8. PEG-INTRON [Suspect]
     Indication: HEPATITIS C
     Dosage: 1.5 MCG/KG, 1.5 MCG/KG, 1.5 MCG/KG
     Dates: start: 20030225
  9. PEG-INTRON [Suspect]
     Indication: HEPATITIS C
     Dosage: 1.5 MCG/KG, 1.5 MCG/KG, 1.5 MCG/KG
     Dates: start: 20030324
  10. BLINDED INTERFERON ALFA-2B W/RIBAVIRIN (S-P) [Suspect]
     Indication: HEPATITIS C
     Dosage: 200 MG
     Dates: start: 20021203, end: 20030526
  11. RADIOTHERAPY [Concomitant]

REACTIONS (3)
  - ANAEMIA [None]
  - DIVERTICULUM INTESTINAL HAEMORRHAGIC [None]
  - RECTAL HAEMORRHAGE [None]
